FAERS Safety Report 10666362 (Version 1)
Quarter: 2014Q4

REPORT INFORMATION
  Report Type: Spontaneous
  Country: FR (occurrence: FR)
  Receive Date: 20141220
  Receipt Date: 20141220
  Transmission Date: 20150529
  Serious: Yes (Hospitalization)
  Sender: FDA-Public Use
  Company Number: FR-009507513-1412FRA008815

PATIENT
  Sex: Female

DRUGS (8)
  1. ATACAND [Concomitant]
     Active Substance: CANDESARTAN CILEXETIL
     Dosage: 1 DF, QD
  2. SINEMET 100 MG / 10 MG COMPRIME SECABLE [Suspect]
     Active Substance: CARBIDOPA\LEVODOPA
     Indication: PARKINSON^S DISEASE
     Dosage: 4 TABLETS QD
     Route: 048
     Dates: start: 2012
  3. SINEMET [Suspect]
     Active Substance: CARBIDOPA\LEVODOPA
     Indication: PARKINSON^S DISEASE
     Dosage: 1 TABLET IN THE EVENING
     Route: 048
     Dates: end: 201402
  4. METFORMIN [Concomitant]
     Active Substance: METFORMIN HYDROCHLORIDE
     Dosage: DOSE DESCRIPTION: UNKNOWN, STRENGTH: 850 (UNITS NOT REPORTED)
  5. ALPRAZOLAM. [Concomitant]
     Active Substance: ALPRAZOLAM
     Dosage: DOSE DESCRIPTION: UNK
  6. VENLAFAXINE HYDROCHLORIDE. [Concomitant]
     Active Substance: VENLAFAXINE HYDROCHLORIDE
     Indication: DEPRESSION
     Dosage: DOSE DESCRIPTION: UNK
  7. LASILIX [Concomitant]
     Active Substance: FUROSEMIDE
     Indication: PERIPHERAL SWELLING
     Dosage: 1 DF, QD
     Route: 048
  8. AMAREL [Concomitant]
     Active Substance: GLIMEPIRIDE

REACTIONS (6)
  - Gait disturbance [Unknown]
  - Salivary hypersecretion [Unknown]
  - Tendon rupture [Unknown]
  - Dysgraphia [Unknown]
  - Balance disorder [Unknown]
  - Tendon rupture [Unknown]

NARRATIVE: CASE EVENT DATE: 2012
